FAERS Safety Report 8291430-9 (Version None)
Quarter: 2012Q2

REPORT INFORMATION
  Report Type: 
  Country: None (occurrence: None)
  Receive Date: 20120417
  Receipt Date: 20120405
  Transmission Date: 20120825
  Serious: Yes (Hospitalization)
  Sender: FDA-Public Use
  Company Number: DE-ROCHE-1057117

PATIENT
  Sex: Female
  Weight: 61 kg

DRUGS (6)
  1. PRAVASTATIN SODIUM [Concomitant]
  2. PACLITAXEL [Suspect]
     Indication: BREAST CANCER
     Route: 042
     Dates: start: 20120103, end: 20120214
  3. AVASTIN [Suspect]
     Indication: BREAST CANCER
     Route: 042
     Dates: start: 20120103, end: 20120214
  4. CALCIGEN [Concomitant]
     Route: 048
     Dates: start: 20100601
  5. PRAVASTATIN [Concomitant]
     Route: 048
     Dates: start: 20100601
  6. ASPIRIN [Concomitant]
     Route: 048
     Dates: start: 20100601

REACTIONS (5)
  - ATAXIA [None]
  - POLYNEUROPATHY [None]
  - RIB FRACTURE [None]
  - HORNER'S SYNDROME [None]
  - FALL [None]
